FAERS Safety Report 16677623 (Version 1)
Quarter: 2019Q3

REPORT INFORMATION
  Report Type: Spontaneous
  Country: US (occurrence: US)
  Receive Date: 20190807
  Receipt Date: 20190807
  Transmission Date: 20191004
  Serious: Yes (Hospitalization, Other)
  Sender: FDA-Public Use
  Company Number: US-MYLANLABS-2019M1072783

PATIENT
  Age: 32 Year
  Sex: Female

DRUGS (3)
  1. ACETAZOLAMIDE. [Concomitant]
     Active Substance: ACETAZOLAMIDE
     Indication: IDIOPATHIC INTRACRANIAL HYPERTENSION
     Dosage: 500 MILLIGRAM
     Route: 065
  2. METHYLPREDNISOLONE. [Suspect]
     Active Substance: METHYLPREDNISOLONE
     Indication: IDIOPATHIC INTRACRANIAL HYPERTENSION
     Dosage: 250 MILLIGRAM, Q6H
     Route: 042
  3. ETHINYLESTRADIOL/NORETHISTERONE [Suspect]
     Active Substance: ETHINYL ESTRADIOL\NORETHINDRONE
     Indication: POLYCYSTIC OVARIES
     Dosage: PILLS
     Route: 065

REACTIONS (3)
  - Cerebral venous thrombosis [Unknown]
  - Cerebrovascular accident [Unknown]
  - Subarachnoid haemorrhage [Unknown]
